FAERS Safety Report 10258358 (Version 1)
Quarter: 2014Q2

REPORT INFORMATION
  Report Type: Spontaneous
  Country: FR (occurrence: FR)
  Receive Date: 20140625
  Receipt Date: 20140625
  Transmission Date: 20141212
  Serious: Yes (Hospitalization)
  Sender: FDA-Public Use
  Company Number: FR-PFIZER INC-2014167951

PATIENT
  Age: 31 Year
  Sex: Male

DRUGS (1)
  1. ADVIL [Suspect]
     Dosage: UNK
     Route: 048
     Dates: start: 20140220, end: 20140220

REACTIONS (2)
  - Lung disorder [Recovering/Resolving]
  - Headache [Unknown]
